FAERS Safety Report 5729632-5 (Version None)
Quarter: 2008Q2

REPORT INFORMATION
  Report Type: 
  Country: None (occurrence: None)
  Receive Date: 20080501
  Receipt Date: 20080424
  Transmission Date: 20081010
  Serious: Yes (Death, Hospitalization)
  Sender: FDA-Public Use
  Company Number: 163-21880-08041699

PATIENT
  Age: 88 Year
  Sex: Female

DRUGS (10)
  1. REVLIMID [Suspect]
     Indication: 5Q-SYNDROME
     Dosage: 10 MG, 2 IN 1 D, ORAL
     Route: 048
     Dates: start: 20071228, end: 20080122
  2. EFFEXOR [Concomitant]
  3. FERROUS SULFATE TAB [Concomitant]
  4. IMDUR [Concomitant]
  5. KLOR-CON [Concomitant]
  6. LANOXIN [Concomitant]
  7. LASIX [Concomitant]
  8. LEVOTHYROXINE SODIUM [Concomitant]
  9. PROTONIX [Concomitant]
  10. ASPIRIN [Concomitant]

REACTIONS (4)
  - BLOOD COUNT ABNORMAL [None]
  - DEEP VEIN THROMBOSIS [None]
  - EMBOLISM [None]
  - MYOCARDIAL INFARCTION [None]
